FAERS Safety Report 16572805 (Version 3)
Quarter: 2019Q3

REPORT INFORMATION
  Report Type: Report from Study
  Country: US (occurrence: US)
  Receive Date: 20190715
  Receipt Date: 20190820
  Transmission Date: 20191004
  Serious: Yes (Hospitalization)
  Sender: FDA-Public Use
  Company Number: US-TESAROUBC-2019-TSO01625-US

PATIENT
  Age: 69 Year
  Sex: Female
  Weight: 58.5 kg

DRUGS (14)
  1. ZEJULA [Suspect]
     Active Substance: NIRAPARIB
     Dosage: 200 MG, QPM WITH FOOD
     Route: 048
     Dates: end: 20190630
  2. MIRALAX [Concomitant]
     Active Substance: POLYETHYLENE GLYCOL 3350
     Indication: PRODUCT USED FOR UNKNOWN INDICATION
     Dosage: QD, AS NEEDED
  3. LORAZEPAM. [Concomitant]
     Active Substance: LORAZEPAM
     Indication: ANXIETY
     Dosage: 0.5 MG, Q8H, AS NEEDED
     Route: 065
  4. OXYCODONE [Concomitant]
     Active Substance: OXYCODONE
     Indication: PAIN
     Dosage: 15 MG, Q4H, AS NEEDED
     Route: 048
     Dates: end: 20190318
  5. EPIPEN [Concomitant]
     Active Substance: EPINEPHRINE
     Indication: PRODUCT USED FOR UNKNOWN INDICATION
     Dosage: 0.3 MG/0.3ML, PRN, MAY REPEAT ONCE IN 10 MINUTES
     Route: 058
  6. ZEJULA [Suspect]
     Active Substance: NIRAPARIB
     Indication: OVARIAN CANCER
     Dosage: 200 MG, QPM WITHOUT FOOD
     Route: 048
     Dates: start: 20190411
  7. ZEJULA [Suspect]
     Active Substance: NIRAPARIB
     Dosage: 100 MG, QD
     Route: 048
     Dates: start: 20190711
  8. URSODIOL. [Concomitant]
     Active Substance: URSODIOL
     Indication: PRODUCT USED FOR UNKNOWN INDICATION
     Dosage: 300 MG, TID
     Route: 048
  9. MAGNESIUM OXIDE. [Concomitant]
     Active Substance: MAGNESIUM OXIDE
     Indication: PRODUCT USED FOR UNKNOWN INDICATION
     Dosage: 400 MG, QD
     Route: 048
  10. PEPCID                             /00305201/ [Concomitant]
     Active Substance: ALUMINUM HYDROXIDE\MAGNESIUM CARBONATE
     Indication: PRODUCT USED FOR UNKNOWN INDICATION
     Dosage: 40 MG, QD
     Route: 048
  11. AVASTIN                            /00848101/ [Concomitant]
     Active Substance: SIMVASTATIN
     Indication: PRODUCT USED FOR UNKNOWN INDICATION
     Dosage: 15 MG/KG, EVERY 3 WEEKS
     Route: 065
     Dates: start: 20180502
  12. LIDOCAINE/PRILOCAINE [Concomitant]
     Active Substance: LIDOCAINE\PRILOCAINE
     Indication: VASCULAR DEVICE USER
     Dosage: UNK
     Route: 065
  13. LEVOTHYROXINE SODIUM. [Concomitant]
     Active Substance: LEVOTHYROXINE SODIUM
     Indication: PRODUCT USED FOR UNKNOWN INDICATION
     Dosage: 50 MCG, QD
     Route: 048
  14. AMBIEN [Concomitant]
     Active Substance: ZOLPIDEM TARTRATE
     Indication: PRODUCT USED FOR UNKNOWN INDICATION
     Dosage: 10 MG, HS
     Route: 048

REACTIONS (17)
  - Arthralgia [Unknown]
  - Urinary tract infection [Unknown]
  - Hepatic enzyme increased [Unknown]
  - Blood alkaline phosphatase increased [Not Recovered/Not Resolved]
  - Nausea [Recovering/Resolving]
  - Cough [Unknown]
  - Heart rate irregular [Recovering/Resolving]
  - Sunburn [Unknown]
  - Lymphadenopathy [Recovered/Resolved]
  - Palpitations [Recovering/Resolving]
  - Red blood cell count decreased [Unknown]
  - Headache [Recovered/Resolved]
  - Pruritus [Recovered/Resolved]
  - Drug intolerance [Recovering/Resolving]
  - Syncope [Unknown]
  - Feeling abnormal [Unknown]
  - Pain [Unknown]

NARRATIVE: CASE EVENT DATE: 201905
